FAERS Safety Report 7771155-6 (Version None)
Quarter: 2011Q3

REPORT INFORMATION
  Report Type: 
  Country: None (occurrence: None)
  Receive Date: 20110922
  Receipt Date: 20100827
  Transmission Date: 20111222
  Serious: No
  Sender: FDA-Public Use
  Company Number: US-ASTRAZENECA-2007UW09160

PATIENT
  Age: 33 Year
  Sex: Female
  Weight: 117.9 kg

DRUGS (10)
  1. SEROQUEL [Suspect]
     Route: 048
     Dates: start: 20061101, end: 20071203
  2. SEROQUEL [Suspect]
     Route: 048
     Dates: start: 20061101, end: 20071203
  3. GEODON [Concomitant]
     Dates: start: 19950101
  4. SEROQUEL [Suspect]
     Indication: DEPRESSION
     Dosage: 100-400 MG
     Route: 048
     Dates: start: 20050803
  5. SEROQUEL [Suspect]
     Indication: SCHIZOPHRENIA
     Dosage: 100-400 MG
     Route: 048
     Dates: start: 20050803
  6. SEROQUEL [Suspect]
     Indication: SLEEP DISORDER
     Dosage: 100-400 MG
     Route: 048
     Dates: start: 20050803
  7. SEROQUEL [Suspect]
     Route: 048
     Dates: start: 20061101, end: 20071203
  8. SEROQUEL [Suspect]
     Route: 048
     Dates: start: 20061101, end: 20071203
  9. SEROQUEL [Suspect]
     Indication: ANXIETY
     Dosage: 100-400 MG
     Route: 048
     Dates: start: 20050803
  10. RISPERDAL [Concomitant]
     Indication: MENTAL DISORDER

REACTIONS (4)
  - TYPE 1 DIABETES MELLITUS [None]
  - DIABETIC COMPLICATION [None]
  - GLYCOSURIA [None]
  - DIABETES MELLITUS [None]
